FAERS Safety Report 4681788-1 (Version None)
Quarter: 2005Q2

REPORT INFORMATION
  Report Type: 
  Country: None (occurrence: None)
  Receive Date: 20050601
  Receipt Date: 20050513
  Transmission Date: 20051028
  Serious: Yes (Other)
  Sender: FDA-Public Use
  Company Number: USA050598050

PATIENT
  Sex: Male

DRUGS (1)
  1. HUMULIN R [Suspect]
     Indication: DIABETES MELLITUS INSULIN-DEPENDENT
     Dosage: 65 U/3 DAY

REACTIONS (3)
  - BLOOD GLUCOSE INCREASED [None]
  - INJECTION SITE DISCOMFORT [None]
  - NEOPLASM MALIGNANT [None]
